FAERS Safety Report 17703005 (Version 2)
Quarter: 2020Q2

REPORT INFORMATION
  Report Type: Spontaneous
  Country: CN (occurrence: CN)
  Receive Date: 20200423
  Receipt Date: 20200508
  Transmission Date: 20200714
  Serious: Yes (Other)
  Sender: FDA-Public Use
  Company Number: CN-BAUSCH-BL-2020-011659

PATIENT
  Age: 8 Year
  Sex: Female
  Weight: 22 kg

DRUGS (3)
  1. PYRIDOSTIGMINE [Concomitant]
     Active Substance: PYRIDOSTIGMINE
     Indication: MYASTHENIC SYNDROME
     Route: 048
     Dates: start: 20181120
  2. PYRIDOSTIGMINE [Concomitant]
     Active Substance: PYRIDOSTIGMINE
     Route: 048
     Dates: end: 20190129
  3. SALBUTAMOL [Suspect]
     Active Substance: ALBUTEROL
     Indication: MYASTHENIC SYNDROME
     Route: 048
     Dates: start: 20190405, end: 20190415

REACTIONS (2)
  - Therapy non-responder [Unknown]
  - Underdose [Unknown]
